FAERS Safety Report 20319458 (Version 2)
Quarter: 2022Q1

REPORT INFORMATION
  Report Type: Spontaneous
  Country: None (occurrence: DK)
  Receive Date: 20220110
  Receipt Date: 20220110
  Transmission Date: 20220423
  Serious: Yes (Other)
  Sender: FDA-Public Use
  Company Number: DK-Canton Laboratories, LLC-2123782

PATIENT
  Age: 30 Year
  Sex: Female

DRUGS (1)
  1. NAPROSYN [Suspect]
     Active Substance: NAPROXEN
     Indication: Erythema nodosum
     Route: 065

REACTIONS (10)
  - Lung diffusion test decreased [Unknown]
  - Sarcoidosis [Unknown]
  - Product use in unapproved indication [Unknown]
  - Asthenia [Unknown]
  - Dyspnoea exertional [Unknown]
  - Myalgia [Unknown]
  - Angiotensin converting enzyme increased [Unknown]
  - Arthralgia [Unknown]
  - Paraesthesia [Unknown]
  - Pulmonary mass [Unknown]
